FAERS Safety Report 9170398 (Version 3)
Quarter: 2013Q2

REPORT INFORMATION
  Report Type: Spontaneous
  Country: US (occurrence: US)
  Receive Date: 20130319
  Receipt Date: 20130507
  Transmission Date: 20140414
  Serious: Yes (Death)
  Sender: FDA-Public Use
  Company Number: US-CELGENEUS-163-21880-13032325

PATIENT
  Age: 85 Year
  Sex: Male
  Weight: 66.28 kg

DRUGS (4)
  1. REVLIMID [Suspect]
     Indication: PLASMA CELL MYELOMA
     Dosage: 10 MILLIGRAM
     Route: 048
     Dates: start: 20110822, end: 20110826
  2. DEXAMETHASONE [Concomitant]
     Indication: PLASMA CELL MYELOMA
     Route: 065
     Dates: start: 2011
  3. ARANESP [Concomitant]
     Indication: RENAL FAILURE CHRONIC
     Route: 065
     Dates: start: 2011
  4. ARANESP [Concomitant]
     Indication: ANAEMIA

REACTIONS (1)
  - Plasma cell myeloma [Fatal]
